FAERS Safety Report 23624706 (Version 2)
Quarter: 2025Q1

REPORT INFORMATION
  Report Type: Spontaneous
  Country: US (occurrence: US)
  Receive Date: 20240313
  Receipt Date: 20250304
  Transmission Date: 20250408
  Serious: No
  Sender: ALEXION PHARMACEUTICALS
  Company Number: 2024A045320

PATIENT
  Age: 68 Year

DRUGS (2)
  1. SYMBICORT AEROSPHERE [Suspect]
     Active Substance: BUDESONIDE\FORMOTEROL FUMARATE
  2. SYMBICORT AEROSPHERE [Suspect]
     Active Substance: BUDESONIDE\FORMOTEROL FUMARATE

REACTIONS (10)
  - Cough [Unknown]
  - Upper-airway cough syndrome [Unknown]
  - Wrong technique in device usage process [Unknown]
  - Device malfunction [Unknown]
  - Incorrect dose administered by device [Unknown]
  - Asthma [Unknown]
  - Influenza [Unknown]
  - Device defective [Unknown]
  - Device use issue [Unknown]
  - Product use issue [Unknown]
